FAERS Safety Report 23091514 (Version 1)
Quarter: 2023Q4

REPORT INFORMATION
  Report Type: Report from Study
  Country: DK (occurrence: DK)
  Receive Date: 20231020
  Receipt Date: 20231020
  Transmission Date: 20240110
  Serious: Yes (Hospitalization, Disabling)
  Sender: FDA-Public Use
  Company Number: DK-TEVA-2023-DK-2909774

PATIENT
  Age: 61 Year
  Sex: Male
  Weight: 80.5 kg

DRUGS (15)
  1. LENALIDOMIDE [Suspect]
     Active Substance: LENALIDOMIDE
     Indication: Follicular lymphoma
     Dosage: CYCLE 1- 12, DAY 1 TO 21, EVERY ONE DAY
     Route: 048
     Dates: start: 20230710
  2. EPCORITAMAB [Suspect]
     Active Substance: EPCORITAMAB
     Indication: Follicular lymphoma
     Route: 065
  3. RITUXIMAB [Suspect]
     Active Substance: RITUXIMAB
     Indication: Follicular lymphoma
     Dosage: CYCLE 1: DAY 1, 8, 15 AND 22, EVERY 1 WEEKS
     Route: 042
     Dates: start: 20230710
  4. Cyanocobalamina [Concomitant]
     Indication: Prophylaxis
     Dosage: 1 MG, 7/WEEKS
     Route: 065
     Dates: start: 20230504
  5. GABAPENTIN [Concomitant]
     Active Substance: GABAPENTIN
     Indication: Neuralgia
     Dosage: 7/WEEKS
     Route: 065
     Dates: start: 20230623
  6. OXYCODONE [Concomitant]
     Active Substance: OXYCODONE
     Indication: Pain
     Dosage: AS NECCESSORY
     Route: 065
     Dates: start: 20230503
  7. ACETAMINOPHEN [Concomitant]
     Active Substance: ACETAMINOPHEN
     Indication: Pain
     Dosage: AS NECCESSORY
     Route: 065
     Dates: start: 20210921
  8. BIOCLAVID [Concomitant]
     Active Substance: AMOXICILLIN\CLAVULANIC ACID
     Indication: Gingivitis
     Dosage: 500/125 MG, 3/DAYS
     Route: 065
     Dates: start: 20230630, end: 20230703
  9. ACYCLOVIR [Concomitant]
     Active Substance: ACYCLOVIR
     Indication: Prophylaxis
     Dosage: 7/WEEKS
     Route: 065
     Dates: start: 20230710
  10. CETIRIZINE HYDROCHLORIDE [Concomitant]
     Active Substance: CETIRIZINE HYDROCHLORIDE
     Indication: Premedication
     Route: 065
     Dates: start: 20230710
  11. PREDNISONE [Concomitant]
     Active Substance: PREDNISONE
     Indication: Premedication
     Route: 065
  12. FRAGMIN [Concomitant]
     Active Substance: DALTEPARIN SODIUM
     Indication: Thrombosis prophylaxis
     Dosage: 15000 ANTI-XA IU, 7/WEEKS
     Route: 065
     Dates: start: 20230513
  13. CLEMASTINE [Concomitant]
     Active Substance: CLEMASTINE
     Indication: Product used for unknown indication
     Dosage: 2/DAYS
     Route: 065
     Dates: start: 20230710, end: 20230710
  14. HYDROCORTISONE [Concomitant]
     Active Substance: HYDROCORTISONE
     Indication: Product used for unknown indication
     Dosage: 100 MILLIGRAM DAILY;  TOTAL
     Route: 065
     Dates: start: 20230710, end: 20230710
  15. ALBUTEROL [Concomitant]
     Active Substance: ALBUTEROL
     Indication: Product used for unknown indication
     Dosage: TOTAL
     Dates: start: 20230710, end: 20230710

REACTIONS (3)
  - Pyrexia [Recovered/Resolved]
  - Infection [Recovered/Resolved]
  - C-reactive protein increased [Recovered/Resolved]

NARRATIVE: CASE EVENT DATE: 20230711
